FAERS Safety Report 5172153-1 (Version None)
Quarter: 2006Q4

REPORT INFORMATION
  Report Type: 
  Country: None (occurrence: None)
  Receive Date: 20061213
  Receipt Date: 20061206
  Transmission Date: 20070319
  Serious: Yes (Other)
  Sender: FDA-Public Use
  Company Number: US-BOEHRINGER INGELHEIM PHARMACEUTICALS, INC.-2006-DE-06495GD

PATIENT
  Age: 78 Year
  Sex: Female

DRUGS (4)
  1. IPRATROPIUM BROMIDE [Suspect]
     Indication: WHEEZING
     Route: 055
  2. IPRATROPIUM BROMIDE [Suspect]
     Indication: RESPIRATORY FAILURE
  3. LEVALBUTEROL HCL [Concomitant]
     Indication: WHEEZING
     Route: 055
  4. LEVALBUTEROL HCL [Concomitant]
     Indication: RESPIRATORY FAILURE

REACTIONS (5)
  - MEDICAL DEVICE COMPLICATION [None]
  - MENTAL STATUS CHANGES [None]
  - MYDRIASIS [None]
  - PUPILS UNEQUAL [None]
  - REVERSIBLE POSTERIOR LEUKOENCEPHALOPATHY SYNDROME [None]
